FAERS Safety Report 6869421-1 (Version None)
Quarter: 2010Q3

REPORT INFORMATION
  Report Type: 
  Country: None (occurrence: None)
  Receive Date: 20100722
  Receipt Date: 20080725
  Transmission Date: 20110219
  Serious: No
  Sender: FDA-Public Use
  Company Number: US-PFIZER INC-2008064097

PATIENT
  Sex: Female

DRUGS (7)
  1. CHANTIX [Suspect]
     Indication: SMOKING CESSATION THERAPY
     Dates: start: 20080701
  2. IMITREX [Concomitant]
  3. ROZEREM [Concomitant]
  4. TOPAMAX [Concomitant]
  5. PAROXETINE HCL [Concomitant]
  6. SIMVASTATIN [Concomitant]
  7. TYLENOL [Concomitant]

REACTIONS (1)
  - DYSGEUSIA [None]
